FAERS Safety Report 19282243 (Version 1)
Quarter: 2021Q2

REPORT INFORMATION
  Report Type: Spontaneous
  Country: DE (occurrence: DE)
  Receive Date: 20210520
  Receipt Date: 20210520
  Transmission Date: 20210717
  Serious: Yes (Other)
  Sender: FDA-Public Use
  Company Number: DE-PFIZER INC-2021530192

PATIENT
  Age: 29 Year
  Sex: Male

DRUGS (33)
  1. AMITRIPTYLINE [Concomitant]
     Active Substance: AMITRIPTYLINE
     Indication: PSYCHIATRIC SYMPTOM
     Dosage: UNK
  2. LORAZEPAM. [Suspect]
     Active Substance: LORAZEPAM
     Indication: PSYCHIATRIC SYMPTOM
  3. SERTRALINE [Concomitant]
     Active Substance: SERTRALINE HYDROCHLORIDE
     Indication: PSYCHIATRIC SYMPTOM
     Dosage: UNK
  4. LEVETIRACETAM. [Concomitant]
     Active Substance: LEVETIRACETAM
     Indication: PSYCHIATRIC SYMPTOM
     Dosage: UNK
  5. LORAZEPAM. [Suspect]
     Active Substance: LORAZEPAM
     Indication: POLYDIPSIA
     Dosage: UNK
  6. ESCITALOPRAM [Concomitant]
     Active Substance: ESCITALOPRAM OXALATE
     Indication: PSYCHIATRIC SYMPTOM
     Dosage: UNK
  7. LITHIUM. [Concomitant]
     Active Substance: LITHIUM
     Indication: PSYCHIATRIC SYMPTOM
     Dosage: UNK
  8. PERAZINE [Concomitant]
     Active Substance: PERAZINE
     Indication: PSYCHIATRIC SYMPTOM
     Dosage: UNK
  9. LAMOTRIGINE. [Concomitant]
     Active Substance: LAMOTRIGINE
     Indication: PSYCHIATRIC SYMPTOM
     Dosage: UNK
  10. ZONISAMIDE. [Concomitant]
     Active Substance: ZONISAMIDE
     Indication: PSYCHIATRIC SYMPTOM
     Dosage: UNK
  11. LACOSAMIDE. [Concomitant]
     Active Substance: LACOSAMIDE
     Indication: PSYCHIATRIC SYMPTOM
     Dosage: UNK
  12. PREGABALIN. [Suspect]
     Active Substance: PREGABALIN
     Indication: PSYCHIATRIC SYMPTOM
  13. NORTRIPTYLINE [Suspect]
     Active Substance: NORTRIPTYLINE
     Indication: PSYCHIATRIC SYMPTOM
     Dosage: UNK
  14. FLUOXETINE [Concomitant]
     Active Substance: FLUOXETINE HYDROCHLORIDE
     Indication: PSYCHIATRIC SYMPTOM
     Dosage: UNK
  15. PAROXETINE. [Concomitant]
     Active Substance: PAROXETINE
     Indication: PSYCHIATRIC SYMPTOM
     Dosage: UNK
  16. BUPROPION. [Concomitant]
     Active Substance: BUPROPION
     Indication: PSYCHIATRIC SYMPTOM
     Dosage: UNK
  17. ARIPIPRAZOLE. [Concomitant]
     Active Substance: ARIPIPRAZOLE
     Indication: PSYCHIATRIC SYMPTOM
     Dosage: UNK
  18. CLONAZEPAM. [Concomitant]
     Active Substance: CLONAZEPAM
     Indication: PSYCHIATRIC SYMPTOM
     Dosage: UNK
  19. CLOBAZAM. [Concomitant]
     Active Substance: CLOBAZAM
     Indication: PSYCHIATRIC SYMPTOM
     Dosage: UNK
  20. PREGABALIN. [Suspect]
     Active Substance: PREGABALIN
     Indication: POLYDIPSIA
     Dosage: UNK
  21. VORTIOXETINE. [Concomitant]
     Active Substance: VORTIOXETINE
     Indication: PSYCHIATRIC SYMPTOM
     Dosage: UNK
  22. HALOPERIDOL. [Concomitant]
     Active Substance: HALOPERIDOL
     Indication: PSYCHIATRIC SYMPTOM
     Dosage: UNK
  23. VALPROATE [Concomitant]
     Active Substance: VALPROIC ACID
     Indication: PSYCHIATRIC SYMPTOM
     Dosage: UNK
  24. QUETIAPINE. [Suspect]
     Active Substance: QUETIAPINE
     Indication: PSYCHIATRIC SYMPTOM
     Dosage: UNK
  25. METHYLPHENIDATE. [Suspect]
     Active Substance: METHYLPHENIDATE
     Indication: PSYCHIATRIC SYMPTOM
  26. VENLAFAXINE [Concomitant]
     Active Substance: VENLAFAXINE HYDROCHLORIDE
     Indication: PSYCHIATRIC SYMPTOM
     Dosage: UNK
  27. OXCARBAZEPINE. [Concomitant]
     Active Substance: OXCARBAZEPINE
     Indication: PSYCHIATRIC SYMPTOM
     Dosage: UNK
  28. METHYLPHENIDATE. [Suspect]
     Active Substance: METHYLPHENIDATE
     Indication: POLYDIPSIA
     Dosage: UNK
  29. CLOMIPRAMINE [Concomitant]
     Active Substance: CLOMIPRAMINE
     Indication: PSYCHIATRIC SYMPTOM
     Dosage: UNK
  30. PROMETHAZINE [Concomitant]
     Active Substance: PROMETHAZINE HYDROCHLORIDE
     Indication: PSYCHIATRIC SYMPTOM
     Dosage: UNK
  31. CARBAMAZEPINE. [Concomitant]
     Active Substance: CARBAMAZEPINE
     Indication: PSYCHIATRIC SYMPTOM
     Dosage: UNK
  32. OXAZEPAM. [Concomitant]
     Active Substance: OXAZEPAM
     Indication: PSYCHIATRIC SYMPTOM
     Dosage: UNK
  33. LITHIUM. [Concomitant]
     Active Substance: LITHIUM
     Indication: POLYDIPSIA

REACTIONS (4)
  - Off label use [Unknown]
  - Hallucination, auditory [Unknown]
  - Persecutory delusion [Unknown]
  - Psychotic disorder [Unknown]
